FAERS Safety Report 16505966 (Version 1)
Quarter: 2019Q3

REPORT INFORMATION
  Report Type: Report from Study
  Country: US (occurrence: US)
  Receive Date: 20190701
  Receipt Date: 20190701
  Transmission Date: 20191004
  Serious: No
  Sender: FDA-Public Use
  Company Number: US-CLOVIS ONCOLOGY-CLO-2019-000921

PATIENT
  Sex: Female

DRUGS (1)
  1. RUBRACA [Suspect]
     Active Substance: RUCAPARIB CAMSYLATE
     Indication: OVARIAN CANCER
     Dosage: 600 MG, BID
     Route: 048
     Dates: start: 20171110

REACTIONS (13)
  - Splenic injury [Recovered/Resolved]
  - Eosinophil count decreased [Unknown]
  - Blood alkaline phosphatase increased [Unknown]
  - Cough [Unknown]
  - Alanine aminotransferase increased [Unknown]
  - Red cell distribution width increased [Unknown]
  - Blood albumin decreased [Unknown]
  - Haematocrit decreased [Unknown]
  - Haemoglobin decreased [Unknown]
  - Red blood cell count decreased [Unknown]
  - Pleural effusion [Unknown]
  - Insomnia [Unknown]
  - Lymphocyte count decreased [Unknown]
